FAERS Safety Report 21317640 (Version 1)
Quarter: 2022Q3

REPORT INFORMATION
  Report Type: Spontaneous
  Country: US (occurrence: US)
  Receive Date: 20220911
  Receipt Date: 20220911
  Transmission Date: 20221027
  Serious: Yes (Life-Threatening, Hospitalization, Other)
  Sender: FDA-Public Use
  Company Number: US-SA-2022SA345861

PATIENT
  Age: 73 Year
  Sex: Female
  Weight: 50.2 kg

DRUGS (16)
  1. DOCETAXEL [Suspect]
     Active Substance: DOCETAXEL
     Indication: Neoplasm
     Dosage: 75 MG, Q3W
     Route: 042
     Dates: start: 20220323, end: 20220413
  2. DOCETAXEL [Suspect]
     Active Substance: DOCETAXEL
     Dosage: 60 MG, Q3W
     Route: 042
     Dates: start: 20220525
  3. MIRZOTAMAB CLEZUTOCLAX [Suspect]
     Active Substance: MIRZOTAMAB CLEZUTOCLAX
     Indication: Neoplasm
     Dosage: 60 MG/M2, Q3W
     Route: 042
     Dates: start: 20220323
  4. XGEVA [Concomitant]
     Active Substance: DENOSUMAB
     Indication: Osteoporosis
     Dosage: 120 MG, Q5MN
     Route: 058
     Dates: start: 2020
  5. CELEBREX [Concomitant]
     Active Substance: CELECOXIB
     Indication: Arthritis
     Dosage: 200 MG, QD
     Route: 048
     Dates: start: 2021
  6. CELEBREX [Concomitant]
     Active Substance: CELECOXIB
     Indication: Arthralgia
  7. MIRALAX [Concomitant]
     Active Substance: POLYETHYLENE GLYCOL 3350
     Indication: Constipation
     Dosage: 17 G, PRN
     Route: 048
     Dates: start: 202202
  8. MESALAMINE [Concomitant]
     Active Substance: MESALAMINE
     Indication: Colitis
     Dosage: 2.6 G, QD
     Route: 048
     Dates: start: 2018
  9. OMEPRAZOLE [Concomitant]
     Active Substance: OMEPRAZOLE
     Indication: Gastrooesophageal reflux disease
     Dosage: 20 MG, QD
     Route: 048
     Dates: start: 2012
  10. TYLENOL [Concomitant]
     Active Substance: ACETAMINOPHEN
     Indication: Back pain
     Dosage: 500 MG, PRN
     Route: 048
     Dates: start: 1998
  11. TYLENOL [Concomitant]
     Active Substance: ACETAMINOPHEN
     Indication: Arthralgia
  12. MILK THISTLE [BETA VULGARIS EXTRACT;CYNARA CARDUNCULUS EXTRACT;LEONURU [Concomitant]
     Indication: Supplementation therapy
     Dosage: 150 MG, QD
     Route: 048
     Dates: start: 2021
  13. VITAMIN D3 [Concomitant]
     Active Substance: CHOLECALCIFEROL
     Indication: Vitamin D deficiency
     Dosage: 125 MG, QD
     Route: 048
     Dates: start: 2021
  14. CLARITIN [Concomitant]
     Active Substance: LORATADINE
     Indication: Seasonal allergy
     Dosage: 10 MG, QD
     Route: 048
     Dates: start: 202103
  15. MEMANTINE [Concomitant]
     Active Substance: MEMANTINE
     Indication: Amnesia
     Dosage: 20 MG, QD
     Route: 048
     Dates: start: 202202
  16. AMOXICILLIN [Concomitant]
     Active Substance: AMOXICILLIN
     Indication: Oral infection
     Dosage: 1000 MG, QD
     Route: 048
     Dates: start: 20220429

REACTIONS (1)
  - Respiratory failure [Recovered/Resolved]

NARRATIVE: CASE EVENT DATE: 20220809
